FAERS Safety Report 6610409-3 (Version None)
Quarter: 2010Q1

REPORT INFORMATION
  Report Type: 
  Country: None (occurrence: None)
  Receive Date: 20100302
  Receipt Date: 20100224
  Transmission Date: 20100710
  Serious: Yes (Life-Threatening)
  Sender: FDA-Public Use
  Company Number: JP-SANOFI-AVENTIS-2010SA006771

PATIENT
  Age: 81 Year
  Sex: Male
  Weight: 48 kg

DRUGS (6)
  1. PLAVIX [Suspect]
     Indication: ANGINA UNSTABLE
     Route: 048
     Dates: start: 20080602, end: 20090603
  2. ASPIRIN [Concomitant]
     Route: 065
     Dates: start: 20080602, end: 20090916
  3. PLETAL [Concomitant]
     Route: 065
     Dates: start: 20090520, end: 20090916
  4. ATORVASTATIN CALCIUM [Concomitant]
     Route: 065
     Dates: start: 20080602, end: 20090520
  5. OMEPRAL [Concomitant]
     Route: 065
     Dates: start: 20080602, end: 20090520
  6. ISOSORBIDE DINITRATE [Concomitant]
     Route: 062
     Dates: start: 20080602, end: 20090916

REACTIONS (1)
  - INTERSTITIAL LUNG DISEASE [None]
